FAERS Safety Report 14402664 (Version 1)
Quarter: 2018Q1

REPORT INFORMATION
  Report Type: Spontaneous
  Country: SA (occurrence: SA)
  Receive Date: 20180116
  Receipt Date: 20180116
  Transmission Date: 20180509
  Serious: Yes (Hospitalization, Disabling)
  Sender: FDA-Public Use
  Company Number: None

PATIENT
  Age: 65 Year
  Sex: Male

DRUGS (1)
  1. ASPARGINASE [Suspect]
     Active Substance: ASPARAGINASE
     Route: 042
     Dates: start: 20170924, end: 20170924

REACTIONS (7)
  - Infusion related reaction [None]
  - Chills [None]
  - Tachypnoea [None]
  - Vomiting [None]
  - Hypertension [None]
  - Nausea [None]
  - Sinus tachycardia [None]

NARRATIVE: CASE EVENT DATE: 20170924
